FAERS Safety Report 9318048 (Version 1)
Quarter: 2013Q2

REPORT INFORMATION
  Report Type: Spontaneous
  Country: US (occurrence: US)
  Receive Date: 20130530
  Receipt Date: 20130530
  Transmission Date: 20140414
  Serious: No
  Sender: FDA-Public Use
  Company Number: US-GLAXOSMITHKLINE-A1002495A

PATIENT
  Age: 69 Year
  Sex: Female

DRUGS (7)
  1. VENTOLIN [Suspect]
     Indication: BRONCHITIS CHRONIC
     Dosage: 1PUFF FOUR TIMES PER DAY
     Route: 055
     Dates: start: 20121112
  2. SPIRIVA [Concomitant]
  3. CLOPIDOGREL [Concomitant]
  4. OMEPRAZOLE [Concomitant]
  5. ISOSORBIDE MONONITRATE [Concomitant]
  6. SIMVASTATIN [Concomitant]
  7. LISINOPRIL [Concomitant]

REACTIONS (3)
  - Oral discomfort [Recovered/Resolved]
  - Oral mucosal erythema [Recovered/Resolved]
  - Oral pain [Recovered/Resolved]
